FAERS Safety Report 15183730 (Version 1)
Quarter: 2018Q3

REPORT INFORMATION
  Report Type: Report from Study
  Country: CH (occurrence: CH)
  Receive Date: 20180723
  Receipt Date: 20180723
  Transmission Date: 20181010
  Serious: Yes (Hospitalization)
  Sender: FDA-Public Use
  Company Number: CH-SAKK-2018SA166937AA

PATIENT
  Sex: Male
  Weight: 62 kg

DRUGS (6)
  1. AFLIBERCEPT [Suspect]
     Active Substance: AFLIBERCEPT
     Dosage: 3.333 MG/KG, QCY
     Route: 041
     Dates: start: 20160725, end: 20160725
  2. 5?FLUORACILO [Concomitant]
     Active Substance: FLUOROURACIL
     Indication: COLORECTAL CANCER METASTATIC
     Dosage: UNK UNK, QCY
     Route: 041
  3. 5?FLUORACILO [Concomitant]
     Active Substance: FLUOROURACIL
     Dosage: UNK
     Route: 040
  4. FOLINIC ACID [Concomitant]
     Active Substance: LEUCOVORIN
     Indication: COLORECTAL CANCER METASTATIC
     Dosage: UNK UNK, QCY
     Route: 041
  5. AFLIBERCEPT [Suspect]
     Active Substance: AFLIBERCEPT
     Indication: COLORECTAL CANCER METASTATIC
     Dosage: 243.97 MG
     Route: 041
     Dates: start: 20161108, end: 20161108
  6. IRINOTECAN [Concomitant]
     Active Substance: IRINOTECAN
     Indication: COLORECTAL CANCER METASTATIC
     Dosage: UNK UNK, QCY
     Route: 041

REACTIONS (1)
  - Adrenal insufficiency [Recovered/Resolved]

NARRATIVE: CASE EVENT DATE: 20161113
